FAERS Safety Report 6548982-6 (Version None)
Quarter: 2010Q1

REPORT INFORMATION
  Report Type: 
  Country: None (occurrence: None)
  Receive Date: 20100125
  Receipt Date: 20100114
  Transmission Date: 20100710
  Serious: Yes (Other)
  Sender: FDA-Public Use
  Company Number: US-JNJFOC-20100106410

PATIENT
  Sex: Female
  Weight: 64.41 kg

DRUGS (9)
  1. ELMIRON [Suspect]
     Indication: CYSTITIS INTERSTITIAL
     Route: 048
  2. TOVIAZ [Suspect]
     Indication: CYSTITIS INTERSTITIAL
     Route: 048
  3. DETROL LA [Suspect]
     Indication: CYSTITIS INTERSTITIAL
     Route: 048
  4. METFORMIN HCL [Concomitant]
     Indication: DIABETES MELLITUS
     Route: 065
  5. METOPROLOL TARTRATE [Concomitant]
     Indication: HEART RATE IRREGULAR
     Dosage: DAILY
     Route: 065
  6. LISINOPRIL [Concomitant]
     Indication: DIABETES MELLITUS
     Dosage: DAILY
     Route: 065
  7. TRIAMTERENE [Concomitant]
     Indication: DRUG USE FOR UNKNOWN INDICATION
     Dosage: 37.5/25MG ONCE DAILY
     Route: 065
  8. SIMVASTATIN [Concomitant]
     Indication: BLOOD CHOLESTEROL INCREASED
     Route: 065
  9. PLAVIX [Concomitant]
     Indication: DRUG USE FOR UNKNOWN INDICATION
     Dosage: DAILY
     Route: 065

REACTIONS (4)
  - COUGH [None]
  - DIZZINESS [None]
  - EPISTAXIS [None]
  - LOSS OF CONSCIOUSNESS [None]
